FAERS Safety Report 9498887 (Version 2)
Quarter: 2014Q1

REPORT INFORMATION
  Report Type: Report from Study
  Country: US (occurrence: US)
  Receive Date: 20130904
  Receipt Date: 20140218
  Transmission Date: 20141002
  Serious: Yes (Hospitalization, Other)
  Sender: FDA-Public Use
  Company Number: US-PURDUE-USA-2013-0105806

PATIENT
  Sex: Female

DRUGS (1)
  1. OXYCONTIN (NDA 22-272) [Suspect]
     Indication: PRODUCT USED FOR UNKNOWN INDICATION
     Dosage: 40 MG, Q12H
     Route: 048

REACTIONS (10)
  - Renal disorder [Unknown]
  - Clostridium difficile infection [Not Recovered/Not Resolved]
  - Urinary tract infection [Unknown]
  - Weight increased [Unknown]
  - Swelling [Unknown]
  - Diarrhoea [Unknown]
  - Dehydration [Unknown]
  - Skin tightness [Unknown]
  - Oedema [Unknown]
  - Thirst [Unknown]
